FAERS Safety Report 4623249-1 (Version None)
Quarter: 2005Q1

REPORT INFORMATION
  Report Type: 
  Country: None (occurrence: None)
  Receive Date: 20050329
  Receipt Date: 20050324
  Transmission Date: 20050727
  Serious: No
  Sender: FDA-Public Use
  Company Number: USA-2005-0019497

PATIENT
  Sex: Female

DRUGS (1)
  1. PALLADONE [Suspect]
     Indication: PAIN

REACTIONS (2)
  - RASH [None]
  - THROAT TIGHTNESS [None]
